FAERS Safety Report 5139465-9 (Version None)
Quarter: 2006Q4

REPORT INFORMATION
  Report Type: 
  Country: None (occurrence: None)
  Receive Date: 20061024
  Receipt Date: 20061012
  Transmission Date: 20070319
  Serious: Yes (Hospitalization)
  Sender: FDA-Public Use
  Company Number: 2006SP004331

PATIENT
  Age: 45 Year
  Sex: Male

DRUGS (6)
  1. PEG-INTRON (PEGINTERFERONA ALFA-2B) [Suspect]
     Indication: HEPATITIS C
     Dosage: SC
     Route: 058
     Dates: start: 20060813, end: 20060901
  2. RIBAVIRIN [Suspect]
     Indication: HEPATITIS C
     Dosage: PO
     Route: 048
     Dates: start: 20060813, end: 20060901
  3. CYMBALTA [Concomitant]
  4. MORPHINE SULFATE [Concomitant]
  5. ROXICODONE [Concomitant]
  6. TRAZODONE HCL [Concomitant]

REACTIONS (1)
  - GAIT DISTURBANCE [None]
